FAERS Safety Report 5685367-9 (Version None)
Quarter: 2008Q1

REPORT INFORMATION
  Report Type: 
  Country: None (occurrence: None)
  Receive Date: 20080328
  Receipt Date: 20080316
  Transmission Date: 20080703
  Serious: Yes (Other)
  Sender: FDA-Public Use
  Company Number: US-PFIZER INC-2008025237

PATIENT
  Sex: Male
  Weight: 73 kg

DRUGS (1)
  1. CHANTIX [Suspect]
     Indication: SMOKING CESSATION THERAPY

REACTIONS (4)
  - DYSPHAGIA [None]
  - GLOSSODYNIA [None]
  - PHARYNGOLARYNGEAL PAIN [None]
  - SWOLLEN TONGUE [None]
